FAERS Safety Report 14933398 (Version 1)
Quarter: 2018Q2

REPORT INFORMATION
  Report Type: Spontaneous
  Country: FR (occurrence: FR)
  Receive Date: 20180524
  Receipt Date: 20180524
  Transmission Date: 20180711
  Serious: Yes (Other)
  Sender: FDA-Public Use
  Company Number: FR-ROCHE-2128609

PATIENT
  Age: 54 Year
  Sex: Female
  Weight: 70 kg

DRUGS (1)
  1. MABTHERA [Suspect]
     Active Substance: RITUXIMAB
     Indication: ANTI-MYELIN-ASSOCIATED GLYCOPROTEIN ASSOCIATED POLYNEUROPATHY
     Dosage: 700MG/CURE
     Route: 041
     Dates: start: 20180122

REACTIONS (1)
  - Hepatocellular injury [Unknown]

NARRATIVE: CASE EVENT DATE: 20180202
